FAERS Safety Report 9267153 (Version 2)
Quarter: 2013Q2

REPORT INFORMATION
  Report Type: Spontaneous
  Country: JP (occurrence: JP)
  Receive Date: 20130502
  Receipt Date: 20130627
  Transmission Date: 20140414
  Serious: Yes (Hospitalization, Other)
  Sender: FDA-Public Use
  Company Number: JP-PFIZER INC-2013132044

PATIENT
  Age: 64 Year
  Sex: Male
  Weight: 82.9 kg

DRUGS (6)
  1. SUTENT [Suspect]
     Indication: METASTATIC RENAL CELL CARCINOMA
     Dosage: 50 MG, 1X/DAY
     Route: 048
     Dates: start: 20130204, end: 20130303
  2. SUTENT [Suspect]
     Dosage: 50 MG, 1X/DAY
     Route: 048
     Dates: start: 20130320, end: 20130327
  3. AMLODIPINE [Concomitant]
     Route: 048
  4. TOWAMIN [Concomitant]
     Route: 048
  5. SYMBICORT [Concomitant]
  6. SPIRIVA [Concomitant]

REACTIONS (6)
  - Septic shock [Recovering/Resolving]
  - Epistaxis [Recovered/Resolved]
  - Anaemia [Not Recovered/Not Resolved]
  - White blood cell count decreased [Not Recovered/Not Resolved]
  - Platelet count decreased [Not Recovered/Not Resolved]
  - Bone marrow failure [Not Recovered/Not Resolved]
